FAERS Safety Report 6116749-9 (Version None)
Quarter: 2009Q1

REPORT INFORMATION
  Report Type: 
  Country: None (occurrence: None)
  Receive Date: 20090314
  Receipt Date: 20081222
  Transmission Date: 20090719
  Serious: No
  Sender: FDA-Public Use
  Company Number: US-ABBOTT-08P-163-0494411-00

PATIENT
  Sex: Male
  Weight: 82.628 kg

DRUGS (4)
  1. HUMIRA [Suspect]
     Indication: RHEUMATOID ARTHRITIS
     Dates: start: 20060101
  2. METHOTREXATE [Concomitant]
     Indication: DRUG USE FOR UNKNOWN INDICATION
  3. PAXIL [Concomitant]
     Indication: DEPRESSION
  4. AVODART [Concomitant]
     Indication: BLADDER DISORDER

REACTIONS (3)
  - ARTHRITIS [None]
  - DRUG DELIVERY SYSTEM MALFUNCTION [None]
  - INJECTION SITE PAIN [None]
